FAERS Safety Report 6824946-X (Version None)
Quarter: 2010Q3

REPORT INFORMATION
  Report Type: 
  Country: None (occurrence: None)
  Receive Date: 20100708
  Receipt Date: 20061204
  Transmission Date: 20110219
  Serious: No
  Sender: FDA-Public Use
  Company Number: US-PFIZER INC-2006152456

PATIENT
  Sex: Female
  Weight: 72.57 kg

DRUGS (8)
  1. CHANTIX [Suspect]
     Indication: SMOKING CESSATION THERAPY
     Dates: start: 20061101
  2. ANTIBIOTICS [Suspect]
     Indication: BRONCHITIS
     Dates: start: 20061101, end: 20061203
  3. ANTIBIOTICS [Suspect]
     Indication: LARYNGITIS
  4. OXYCODONE HCL [Concomitant]
  5. VALIUM [Concomitant]
  6. AMBIEN [Concomitant]
  7. HYDROCODONE BITARTRATE [Concomitant]
  8. ACIPHEX [Concomitant]

REACTIONS (7)
  - ABDOMINAL PAIN [None]
  - BRONCHITIS [None]
  - CONSTIPATION [None]
  - DYSGEUSIA [None]
  - LARYNGITIS [None]
  - ORAL PAIN [None]
  - RHINORRHOEA [None]
